FAERS Safety Report 9304802 (Version 1)
Quarter: 2013Q2

REPORT INFORMATION
  Report Type: Spontaneous
  Country: GB (occurrence: None)
  Receive Date: 20130521
  Receipt Date: 20130521
  Transmission Date: 20140414
  Serious: Yes (Disabling)
  Sender: FDA-Public Use
  Company Number: GER/UKI/13/0029608

PATIENT
  Age: 44 Year
  Sex: Male
  Weight: 95 kg

DRUGS (2)
  1. AMLODIPINE (AMLODIPINE) [Suspect]
     Indication: HYPERTENSION
     Route: 048
     Dates: start: 20130403, end: 20130502
  2. ALLOPURINOL [Concomitant]

REACTIONS (5)
  - Anxiety [None]
  - Gout [None]
  - Dizziness [None]
  - Tachyarrhythmia [None]
  - Mental impairment [None]
